FAERS Safety Report 17130978 (Version 1)
Quarter: 2019Q4

REPORT INFORMATION
  Report Type: Spontaneous
  Country: ES (occurrence: ES)
  Receive Date: 20191209
  Receipt Date: 20191209
  Transmission Date: 20200122
  Serious: Yes (Hospitalization)
  Sender: FDA-Public Use
  Company Number: NVSC2019ES055817

PATIENT
  Age: 20 Year
  Sex: Male

DRUGS (2)
  1. DEXKETOPROFEN TROMETAMOL [Suspect]
     Active Substance: DEXKETOPROFEN TROMETAMOL
     Indication: ALCOHOLIC HANGOVER
     Dosage: UNK
     Route: 048
     Dates: start: 20190501, end: 20190529
  2. IBUPROFEN. [Suspect]
     Active Substance: IBUPROFEN
     Indication: ALCOHOLIC HANGOVER
     Dosage: UNK
     Route: 048
     Dates: start: 20190501, end: 20190529

REACTIONS (2)
  - Acute kidney injury [Recovering/Resolving]
  - Tubulointerstitial nephritis [Recovering/Resolving]

NARRATIVE: CASE EVENT DATE: 20190529
